FAERS Safety Report 20346076 (Version 1)
Quarter: 2022Q1

REPORT INFORMATION
  Report Type: Spontaneous
  Country: CA (occurrence: CA)
  Receive Date: 20220118
  Receipt Date: 20220118
  Transmission Date: 20220423
  Serious: Yes (Hospitalization)
  Sender: FDA-Public Use
  Company Number: CA-NAPPMUNDI-GBR-2022-0094307

PATIENT
  Age: 34 Year
  Sex: Male

DRUGS (2)
  1. MORPHINE SULFATE [Suspect]
     Active Substance: MORPHINE SULFATE
     Indication: Pain
     Dosage: UNK
     Route: 065
  2. PREDNISONE [Concomitant]
     Active Substance: PREDNISONE
     Indication: Colitis ulcerative
     Dosage: 40 MG, EVERY 1DAY
     Route: 065

REACTIONS (6)
  - Colitis ulcerative [Unknown]
  - Lethargy [Unknown]
  - Muscle spasms [Unknown]
  - Weight decreased [Unknown]
  - Insomnia [Unknown]
  - Asthenia [Unknown]
